FAERS Safety Report 6411430-0 (Version None)
Quarter: 2009Q4

REPORT INFORMATION
  Report Type: 
  Country: None (occurrence: None)
  Receive Date: 20091023
  Receipt Date: 20091013
  Transmission Date: 20100525
  Serious: Yes (Other)
  Sender: FDA-Public Use
  Company Number: GB-JNJFOC-20091004863

PATIENT
  Sex: Female
  Weight: 63 kg

DRUGS (8)
  1. REMICADE [Suspect]
     Route: 042
  2. REMICADE [Suspect]
     Indication: RHEUMATOID ARTHRITIS
     Route: 042
  3. SULFASALAZINE [Concomitant]
  4. METHOTREXATE [Concomitant]
  5. CO-CODAMOL [Concomitant]
  6. FOLIC ACID [Concomitant]
  7. HYDROXYCHLOROQUINE SULFATE [Concomitant]
  8. NABUMETONE [Concomitant]

REACTIONS (2)
  - EXOSTOSIS [None]
  - IMPAIRED HEALING [None]
